FAERS Safety Report 16706693 (Version 1)
Quarter: 2019Q3

REPORT INFORMATION
  Report Type: Spontaneous
  Country: US (occurrence: US)
  Receive Date: 20190815
  Receipt Date: 20190815
  Transmission Date: 20191004
  Serious: No
  Sender: FDA-Public Use
  Company Number: US-009507513-1908USA003282

PATIENT
  Age: 46 Year
  Sex: Female

DRUGS (2)
  1. JANUMET XR [Suspect]
     Active Substance: METFORMIN HYDROCHLORIDE\SITAGLIPTIN PHOSPHATE
     Indication: TYPE 2 DIABETES MELLITUS
     Dosage: UNK
     Route: 048
     Dates: start: 201907
  2. JANUMET XR [Suspect]
     Active Substance: METFORMIN HYDROCHLORIDE\SITAGLIPTIN PHOSPHATE
     Indication: TYPE 2 DIABETES MELLITUS
     Dosage: 2 TABLETS DAILY
     Route: 048

REACTIONS (4)
  - Diarrhoea [Recovering/Resolving]
  - Abdominal pain upper [Recovering/Resolving]
  - Gastrointestinal tract irritation [Recovering/Resolving]
  - Product dispensing error [Unknown]

NARRATIVE: CASE EVENT DATE: 201907
